FAERS Safety Report 9747521 (Version 3)
Quarter: 2014Q1

REPORT INFORMATION
  Report Type: Spontaneous
  Country: IT (occurrence: IT)
  Receive Date: 20131212
  Receipt Date: 20140102
  Transmission Date: 20141002
  Serious: Yes (Hospitalization, Other)
  Sender: FDA-Public Use
  Company Number: IT-ALEXION PHARMACEUTICALS INC.-A201302650

PATIENT
  Age: 5 Year
  Sex: Male
  Weight: 19.5 kg

DRUGS (13)
  1. SOLIRIS 300MG [Suspect]
     Indication: HAEMOLYTIC URAEMIC SYNDROME
     Dosage: 600 MG, UNK
     Route: 042
     Dates: start: 20110819, end: 20110902
  2. SOLIRIS 300MG [Suspect]
     Dosage: 300 MG, Q2W
     Route: 042
     Dates: start: 20110916, end: 20121029
  3. SOLIRIS 300MG [Suspect]
     Dosage: 600 MG, Q 12-14 DAYS
     Route: 042
     Dates: start: 20131113
  4. PREDNISONE [Concomitant]
     Dosage: 2.5 MG, EVERY OTHER DAY
     Route: 048
     Dates: start: 20130318
  5. PREDNISONE [Concomitant]
     Dosage: 5 MG, QD
     Route: 048
     Dates: start: 201109
  6. MYCOPHENOLATE MOFETIL [Concomitant]
     Dosage: 45 MG, BID
     Route: 048
     Dates: end: 20110202
  7. LANSOPRAZOLO [Concomitant]
     Dosage: 15 MG, QD
     Route: 048
  8. NEORAL SANDIMMUN [Concomitant]
     Dosage: 55 MG, BID
     Route: 048
     Dates: start: 20120523
  9. OSSIBUTININA [Concomitant]
     Dosage: 7.5 MG, TID
     Route: 048
     Dates: start: 20130501
  10. COUMADIN [Concomitant]
     Dosage: UNK
     Dates: end: 20120228
  11. MENVEO [Concomitant]
     Indication: IMMUNISATION
     Dosage: UNK
     Dates: start: 20111213, end: 20111213
  12. FLUARIX [Concomitant]
     Indication: IMMUNISATION
     Dosage: UNK
     Dates: start: 20120124, end: 20120124
  13. PREVENAR 13 [Concomitant]
     Indication: IMMUNISATION
     Dosage: UNK
     Dates: start: 20120228, end: 20120228

REACTIONS (18)
  - Burkholderia cepacia complex sepsis [Unknown]
  - Varicella [Unknown]
  - Gastrostomy tube removal [Recovered/Resolved]
  - Klebsiella infection [Unknown]
  - Thrombocytopenia [Unknown]
  - Pyrexia [Recovered/Resolved]
  - Vomiting [Unknown]
  - Diarrhoea [Recovered/Resolved]
  - Haemolysis [Unknown]
  - Platelet count decreased [Not Recovered/Not Resolved]
  - Inappropriate schedule of drug administration [Not Recovered/Not Resolved]
  - Cytomegalovirus test positive [Recovered/Resolved]
  - Escherichia test positive [Recovered/Resolved]
  - Pseudomonas test positive [Recovered/Resolved]
  - Rhinitis [Recovering/Resolving]
  - Upper respiratory tract infection [Unknown]
  - Leukopenia [Unknown]
  - Constipation [Unknown]
